FAERS Safety Report 5029886-7 (Version None)
Quarter: 2006Q2

REPORT INFORMATION
  Report Type: 
  Country: None (occurrence: None)
  Receive Date: 20060620
  Receipt Date: 20060530
  Transmission Date: 20061013
  Serious: Yes (Hospitalization)
  Sender: FDA-Public Use
  Company Number: FR-ABBOTT-06P-056-0334724-00

PATIENT
  Age: 56 Year
  Sex: Male

DRUGS (6)
  1. NORVIR [Suspect]
     Indication: ACQUIRED IMMUNODEFICIENCY SYNDROME
     Route: 048
     Dates: start: 20050509
  2. DEPAKENE [Suspect]
     Indication: EPILEPSY
     Route: 048
     Dates: start: 19990604
  3. TENOFOVIR DISOPROXIL [Suspect]
     Indication: ACQUIRED IMMUNODEFICIENCY SYNDROME
     Route: 048
     Dates: start: 20020828, end: 20060221
  4. DIDANOSINE [Suspect]
     Indication: ACQUIRED IMMUNODEFICIENCY SYNDROME
     Dosage: CAPLET CAPLET
     Route: 048
     Dates: start: 20020828
  5. CLOPIDOGREL BISULFATE [Suspect]
     Indication: ARTERIOPATHIC DISEASE
     Route: 048
     Dates: start: 20040901
  6. ATAZANAVIR [Suspect]
     Indication: ACQUIRED IMMUNODEFICIENCY SYNDROME
     Route: 048
     Dates: start: 20050509

REACTIONS (2)
  - FANCONI SYNDROME ACQUIRED [None]
  - RENAL FAILURE [None]
